FAERS Safety Report 7293548-6 (Version None)
Quarter: 2011Q1

REPORT INFORMATION
  Report Type: 
  Country: None (occurrence: None)
  Receive Date: 20110215
  Receipt Date: 20110204
  Transmission Date: 20110831
  Serious: Yes (Disabling, Other)
  Sender: FDA-Public Use
  Company Number: US-MERCK-1008USA00567

PATIENT
  Age: 91 Year
  Sex: Female

DRUGS (5)
  1. POTASSIUM CHLORIDE [Concomitant]
     Route: 065
     Dates: start: 20040101
  2. FUROSEMIDE [Concomitant]
     Indication: FLUID RETENTION
     Route: 065
     Dates: start: 20040101
  3. ACTONEL [Suspect]
     Indication: OSTEOPOROSIS
     Route: 065
     Dates: start: 20050101, end: 20051101
  4. FOSAMAX [Suspect]
     Indication: OSTEOPOROSIS
     Route: 048
     Dates: start: 20051101, end: 20070101
  5. AMIODARONE [Concomitant]
     Indication: ARRHYTHMIA
     Route: 065
     Dates: start: 20040101

REACTIONS (10)
  - GINGIVAL SWELLING [None]
  - TRANSFUSION [None]
  - SKELETAL INJURY [None]
  - JAW DISORDER [None]
  - EAR DISORDER [None]
  - OSTEONECROSIS [None]
  - DENTAL FISTULA [None]
  - ORAL INFECTION [None]
  - DYSPNOEA EXERTIONAL [None]
  - OSTEONECROSIS OF JAW [None]
